FAERS Safety Report 13421069 (Version 1)
Quarter: 2017Q2

REPORT INFORMATION
  Report Type: Spontaneous
  Country: US (occurrence: US)
  Receive Date: 20170410
  Receipt Date: 20170410
  Transmission Date: 20170830
  Serious: Yes (Other)
  Sender: FDA-Public Use
  Company Number: US-AUROBINDO-AUR-APU-2015-06206

PATIENT

DRUGS (1)
  1. ESCITALOPRAM TABLETS USP 20MG [Suspect]
     Active Substance: ESCITALOPRAM OXALATE
     Indication: PRODUCT USED FOR UNKNOWN INDICATION
     Dosage: 20 MG, UNK
     Route: 065

REACTIONS (11)
  - Suicidal ideation [Unknown]
  - Crying [Unknown]
  - Depression [Unknown]
  - Feeling abnormal [Unknown]
  - Insomnia [Unknown]
  - Headache [Unknown]
  - Anger [Unknown]
  - Vomiting [Unknown]
  - Fatigue [Unknown]
  - Anxiety [Unknown]
  - Nausea [Unknown]
